FAERS Safety Report 13702204 (Version 1)
Quarter: 2017Q2

REPORT INFORMATION
  Report Type: Spontaneous
  Country: ES (occurrence: ES)
  Receive Date: 20170629
  Receipt Date: 20170629
  Transmission Date: 20170830
  Serious: Yes (Hospitalization)
  Sender: FDA-Public Use
  Company Number: ES-TEVA-781109ISR

PATIENT
  Age: 76 Year
  Sex: Male

DRUGS (14)
  1. BONESIL D FLAS 1500 MG/400 UI COMPRIMIDOS BUCODISPERSABLES, 60 COMPRIM [Concomitant]
     Dosage: 2 DOSAGE FORMS DAILY;
     Route: 065
  2. LESCOL PROLIB 80 MG COMPRIMIDOS DE LIBERACION PROLONGADA , 28 COMPRIMI [Concomitant]
     Dosage: 80 MILLIGRAM DAILY; WITH THE DINNER
     Route: 065
  3. COMBIPRASAL 0.5 MG/2.5 MG SOLUCION PARA INHALACION POR NEBULIZACION [Concomitant]
     Dosage: 6 DOSAGE FORMS DAILY; IPRATROPIUM BROMIDE 0.5MG/SALBUTAMOL 2.5MG
     Route: 065
  4. TROMALYT 150, CAPSULAS DURAS DE LIBERACION PROLONGADA , 28 CAPSULAS [Concomitant]
     Dosage: 150 MILLIGRAM DAILY; WITH LUNCH
     Route: 065
  5. FUROSEMIDE. [Concomitant]
     Active Substance: FUROSEMIDE
     Dosage: 40 MILLIGRAM DAILY; 1-0-0
     Route: 065
  6. JURNISTA 4 MG COMPRIMIDOS DE LIBERACION PROLONGADA , 30 COMPRIMIDOS [Concomitant]
     Dosage: 4 MILLIGRAM DAILY;
     Route: 065
  7. NORVORAPID FLEXPEN [Concomitant]
     Dosage: 6-9-0-4-0UI
     Route: 065
  8. LORMETAZEPAM [Concomitant]
     Active Substance: LORMETAZEPAM
     Dosage: 2 MILLIGRAM DAILY; AT NIGHT
     Route: 065
  9. ACTIQ [Suspect]
     Active Substance: FENTANYL CITRATE
     Indication: BACK PAIN
     Dosage: 600 MICROGRAM DAILY;
     Route: 002
     Dates: start: 2017, end: 20170526
  10. TOUJEO 300 UNIDADES/ML SOLUCION INYECTABLE EN PLUMA PRECARGADA 3 PLUMA [Concomitant]
     Dosage: 300 UNITS/ML, 25IU WITH DINNER
     Route: 065
  11. FLUCONAZOLE. [Suspect]
     Active Substance: FLUCONAZOLE
     Indication: OROPHARYNGEAL CANDIDIASIS
     Route: 048
     Dates: start: 201705, end: 20170526
  12. HIDROALTESONA COMPRIMIDOS, 30 COMPRIMIDOS [Concomitant]
     Dosage: 30 MILLIGRAM DAILY; 1/2-1/2-1/2
     Route: 065
  13. HIDROFEROL 0,266 MG [Concomitant]
     Route: 065
  14. CYMBALTA 60 MG CAPSULAS DURAS GASTRORRESISTENTES, 28 CAPSULAS [Concomitant]
     Dosage: 60 MILLIGRAM DAILY; WITH BREAKFAST
     Route: 065

REACTIONS (2)
  - Balance disorder [Recovered/Resolved]
  - Fall [Recovered/Resolved]

NARRATIVE: CASE EVENT DATE: 20170526
